FAERS Safety Report 8272512-4 (Version None)
Quarter: 2012Q2

REPORT INFORMATION
  Report Type: 
  Country: None (occurrence: None)
  Receive Date: 20120410
  Receipt Date: 20120402
  Transmission Date: 20120825
  Serious: Yes (Other)
  Sender: FDA-Public Use
  Company Number: US-GILEAD-2012-0053067

PATIENT
  Age: 44 Year
  Sex: Male

DRUGS (1)
  1. CIDOFOVIR [Suspect]
     Indication: PAPILLOMA VIRAL INFECTION
     Dosage: 1 DF, CYCLICAL
     Route: 061
     Dates: start: 20090212, end: 20090608

REACTIONS (2)
  - SKIN INFECTION [None]
  - SKIN ULCER [None]
